FAERS Safety Report 8079382-8 (Version None)
Quarter: 2012Q1

REPORT INFORMATION
  Report Type: 
  Country: None (occurrence: None)
  Receive Date: 20120128
  Receipt Date: 20110821
  Transmission Date: 20120608
  Serious: No
  Sender: FDA-Public Use
  Company Number: US-ABBOTT-11P-163-0848395-00

PATIENT
  Age: 52 Year
  Sex: Female

DRUGS (11)
  1. LISINOPRIL [Concomitant]
     Indication: HYPERTENSION
     Dosage: DAILY
  2. VITAMIN D [Concomitant]
     Indication: VITAMIN SUPPLEMENTATION
  3. SIMVASTATIN [Concomitant]
     Indication: PRODUCT USED FOR UNKNOWN INDICATION
  4. VITAMIN B1 TAB [Concomitant]
     Indication: VITAMIN SUPPLEMENTATION
  5. HUMIRA [Suspect]
     Indication: PSORIASIS
     Dosage: ON 21 AUG 2011
     Dates: start: 20110821
  6. JUNUVIA [Concomitant]
     Indication: PRODUCT USED FOR UNKNOWN INDICATION
  7. HUMIRA [Suspect]
  8. LYRICA [Concomitant]
     Indication: PRODUCT USED FOR UNKNOWN INDICATION
     Dosage: 4 CAPSULES
  9. HUMIRA [Suspect]
  10. FOLIC ACID [Concomitant]
     Indication: VITAMIN SUPPLEMENTATION
     Dosage: DAILY
  11. VITAMIN B-12 [Concomitant]
     Indication: VITAMIN SUPPLEMENTATION

REACTIONS (2)
  - INJECTION SITE PAIN [None]
  - INJECTION SITE NODULE [None]
